FAERS Safety Report 4382537-7 (Version None)
Quarter: 2004Q2

REPORT INFORMATION
  Report Type: 
  Country: None (occurrence: None)
  Receive Date: 20040614
  Receipt Date: 20040525
  Transmission Date: 20050107
  Serious: Yes (Death, Life-Threatening)
  Sender: FDA-Public Use
  Company Number: 237245

PATIENT
  Age: 17 Year
  Sex: Male

DRUGS (13)
  1. NOVOSEVEN [Suspect]
     Indication: POST PROCEDURAL HAEMORRHAGE
     Dates: start: 20040419, end: 20040506
  2. BURUBEX (BUMETANIDE) [Concomitant]
  3. TAZOCILLINE (TAZOBACTAM SODIUM, PIPERACILLIN SODIUM) [Concomitant]
  4. FLUCONAZOLE [Concomitant]
  5. MABTHERA (RITUXIMAB0 [Concomitant]
  6. HYPERAMINE [Concomitant]
  7. SOLU-MEDROL [Concomitant]
  8. OMEPRAZOLE [Concomitant]
  9. ROCEPHIN [Concomitant]
  10. LASIX [Concomitant]
  11. TARGOCID [Concomitant]
  12. THIOPENTAL SODIUM [Concomitant]
  13. CLONAZEPAM [Concomitant]

REACTIONS (9)
  - CHOLECYSTECTOMY [None]
  - COLECTOMY TOTAL [None]
  - COMA [None]
  - DIALYSIS [None]
  - ENCEPHALOPATHY [None]
  - HYPERAMMONAEMIA [None]
  - PERITONITIS [None]
  - PLASMAPHERESIS [None]
  - SPLENECTOMY [None]
